FAERS Safety Report 5034173-7 (Version None)
Quarter: 2006Q2

REPORT INFORMATION
  Report Type: 
  Country: None (occurrence: None)
  Receive Date: 20060626
  Receipt Date: 20060426
  Transmission Date: 20061013
  Serious: Yes (Other)
  Sender: FDA-Public Use
  Company Number: 4913

PATIENT
  Age: 36 Year
  Sex: Female

DRUGS (1)
  1. MEPRON [Suspect]
     Indication: LYME DISEASE
     Route: 048
     Dates: start: 20060421, end: 20060422

REACTIONS (4)
  - CHILLS [None]
  - PHARMACEUTICAL PRODUCT COMPLAINT [None]
  - TREMOR [None]
  - URTICARIA [None]
